FAERS Safety Report 10753790 (Version 1)
Quarter: 2015Q1

REPORT INFORMATION
  Report Type: Spontaneous
  Country: US (occurrence: None)
  Receive Date: 20150129
  Receipt Date: 20150129
  Transmission Date: 20150721
  Serious: Yes (Life-Threatening, Disabling)
  Sender: FDA-Public Use
  Company Number: None

PATIENT
  Age: 46 Year
  Sex: Female
  Weight: 74.84 kg

DRUGS (1)
  1. ARMOUR THYROID [Suspect]
     Active Substance: THYROID, PORCINE\THYROID, UNSPECIFIED
     Dosage: 2
     Route: 048

REACTIONS (7)
  - Menstruation delayed [None]
  - Swelling [None]
  - Hypertension [None]
  - Cushingoid [None]
  - Tachycardia [None]
  - Product formulation issue [None]
  - Drug hypersensitivity [None]

NARRATIVE: CASE EVENT DATE: 20140901
